FAERS Safety Report 8155655-5 (Version None)
Quarter: 2012Q1

REPORT INFORMATION
  Report Type: 
  Country: None (occurrence: None)
  Receive Date: 20120222
  Receipt Date: 20120216
  Transmission Date: 20120608
  Serious: No
  Sender: FDA-Public Use
  Company Number: US-PFIZER INC-2012043523

PATIENT
  Sex: Male
  Weight: 107 kg

DRUGS (12)
  1. CELEBREX [Concomitant]
     Indication: BACK DISORDER
     Dosage: 200 MG, UNK
  2. FISH OIL [Concomitant]
     Dosage: UNK
  3. VITAMIN D [Concomitant]
     Dosage: UNK
  4. WARFARIN SODIUM [Concomitant]
     Indication: CARDIAC DISORDER
     Dosage: 5 MG, DAILY
  5. RAMIPRIL [Concomitant]
     Dosage: 10 MG, DAILY
  6. CELEBREX [Concomitant]
     Indication: PAIN
  7. AZELASTINE HYDROCHLORIDE [Suspect]
     Dosage: UNK
     Dates: end: 20120208
  8. TOVIAZ [Suspect]
     Indication: POLLAKIURIA
     Dosage: UNK, DAILY
     Dates: start: 20120208
  9. METOPROLOL [Concomitant]
     Dosage: 50 MG, DAILY
  10. LEVOXYL [Concomitant]
     Dosage: 100 UG, DAILY
  11. OMEPRAZOLE [Concomitant]
     Indication: DYSPEPSIA
     Dosage: 20 MG, DAILY
  12. CYMBALTA [Concomitant]
     Dosage: 30 MG, DAILY

REACTIONS (4)
  - DRY MOUTH [None]
  - CONSTIPATION [None]
  - DRUG INEFFECTIVE [None]
  - DRUG ADMINISTRATION ERROR [None]
